FAERS Safety Report 5193831-4 (Version None)
Quarter: 2006Q4

REPORT INFORMATION
  Report Type: 
  Country: None (occurrence: None)
  Receive Date: 20061228
  Receipt Date: 20061218
  Transmission Date: 20070319
  Serious: Yes (Death, Life-Threatening)
  Sender: FDA-Public Use
  Company Number: 2006AP06039

PATIENT
  Age: 26945 Day
  Sex: Female

DRUGS (8)
  1. IRESSA [Suspect]
     Indication: NON-SMALL CELL LUNG CANCER STAGE II
     Route: 048
     Dates: start: 20060117, end: 20061102
  2. IRESSA [Suspect]
     Indication: LUNG ADENOCARCINOMA
     Route: 048
     Dates: start: 20060117, end: 20061102
  3. IRESSA [Suspect]
     Route: 048
  4. IRESSA [Suspect]
     Route: 048
  5. IRESSA [Suspect]
     Route: 048
  6. IRESSA [Suspect]
     Route: 048
  7. NORVASK [Concomitant]
     Indication: HYPERTENSION
     Route: 048
     Dates: start: 19950101
  8. ZESTRIL [Concomitant]
     Indication: HYPERTENSION
     Route: 048
     Dates: start: 19950101

REACTIONS (4)
  - DIARRHOEA [None]
  - HAEMODIALYSIS [None]
  - RENAL FAILURE [None]
  - VOMITING [None]
